FAERS Safety Report 15070192 (Version 4)
Quarter: 2018Q3

REPORT INFORMATION
  Report Type: Spontaneous
  Country: JP (occurrence: JP)
  Receive Date: 20180626
  Receipt Date: 20180809
  Transmission Date: 20181010
  Serious: Yes (Other)
  Sender: FDA-Public Use
  Company Number: JP-AMGEN-JPNSP2018084800

PATIENT
  Age: 79 Year
  Sex: Female

DRUGS (10)
  1. EDIROL [Concomitant]
     Active Substance: ELDECALCITOL
     Dosage: 0.75 MUG, QD
     Route: 065
     Dates: start: 20151120
  2. PRALIA [Suspect]
     Active Substance: DENOSUMAB
     Indication: SPINAL COMPRESSION FRACTURE
     Dosage: UNK
     Route: 058
     Dates: end: 20171216
  3. PEON [Concomitant]
     Active Substance: ZALTOPROFEN
     Dosage: UNK, TID
     Route: 065
     Dates: start: 20140117
  4. BONOTEO [Suspect]
     Active Substance: MINODRONIC ACID
     Indication: OSTEOPOROSIS
     Dosage: 50 MG, QD
     Route: 065
     Dates: start: 20120127, end: 20131227
  5. FOSAMAC [Suspect]
     Active Substance: ALENDRONATE SODIUM
     Indication: OSTEOPOROSIS
     Dosage: 35 MG, UNK
     Route: 065
     Dates: start: 20100507, end: 20111227
  6. HYPEN [Concomitant]
     Dosage: 100 MG, BID
     Route: 065
     Dates: start: 20100507, end: 20130524
  7. CELECOX [Concomitant]
     Active Substance: CELECOXIB
     Dosage: 100 MG, UNK
     Route: 065
     Dates: start: 20130628, end: 20131227
  8. MUCOSTA [Concomitant]
     Active Substance: REBAMIPIDE
     Dosage: UNK, TID
     Route: 065
     Dates: start: 20140117
  9. PRALIA [Suspect]
     Active Substance: DENOSUMAB
     Indication: OSTEOPOROSIS
     Dosage: 60 MG, Q6MO
     Route: 058
     Dates: start: 20151120, end: 20171216
  10. TERIBONE [Concomitant]
     Active Substance: TERIPARATIDE ACETATE
     Indication: SPINAL COMPRESSION FRACTURE
     Dosage: UNK, 72 TIMES
     Route: 065
     Dates: start: 20140117, end: 20151106

REACTIONS (1)
  - Osteonecrosis of jaw [Unknown]

NARRATIVE: CASE EVENT DATE: 201806
